FAERS Safety Report 12118885 (Version 1)
Quarter: 2016Q1

REPORT INFORMATION
  Report Type: Spontaneous
  Country: US (occurrence: None)
  Receive Date: 20160225
  Receipt Date: 20160225
  Transmission Date: 20160526
  Serious: Yes (Disabling)
  Sender: FDA-Public Use
  Company Number: None

PATIENT
  Age: 52 Year
  Sex: Male
  Weight: 99.79 kg

DRUGS (5)
  1. LINSOPRIL HCTZ [Concomitant]
  2. CRESTOR [Concomitant]
     Active Substance: ROSUVASTATIN CALCIUM
  3. TIMOLOL. [Concomitant]
     Active Substance: TIMOLOL
  4. ONE A DAY VITAMINS [Concomitant]
  5. VIAGRA [Suspect]
     Active Substance: SILDENAFIL CITRATE
     Indication: ERECTILE DYSFUNCTION
     Route: 048
     Dates: end: 20160222

REACTIONS (1)
  - Glaucoma [None]

NARRATIVE: CASE EVENT DATE: 20160222
